FAERS Safety Report 4811383-2 (Version None)
Quarter: 2005Q4

REPORT INFORMATION
  Report Type: 
  Country: None (occurrence: None)
  Receive Date: 20051026
  Receipt Date: 20051026
  Transmission Date: 20060501
  Serious: Yes (Hospitalization)
  Sender: FDA-Public Use
  Company Number: None

PATIENT
  Sex: Female
  Weight: 75 kg

DRUGS (6)
  1. NORGESIC FORTE [Suspect]
     Indication: MYALGIA
     Dosage: 1/2 TO 2 TABLETS   BID PRN   PO
     Route: 048
     Dates: start: 20041001, end: 20051017
  2. EVISTA [Concomitant]
  3. PRAVACHOL [Concomitant]
  4. ACIPHEX [Concomitant]
  5. BUMEX [Concomitant]
  6. TYLENOL (CAPLET) [Concomitant]

REACTIONS (1)
  - UPPER GASTROINTESTINAL HAEMORRHAGE [None]
